FAERS Safety Report 5355711-0 (Version None)
Quarter: 2007Q2

REPORT INFORMATION
  Report Type: 
  Country: None (occurrence: None)
  Receive Date: 20070613
  Receipt Date: 20070608
  Transmission Date: 20071010
  Serious: Yes (Life-Threatening, Hospitalization, Other)
  Sender: FDA-Public Use
  Company Number: GB-ASTRAZENECA-2007GB01209

PATIENT
  Age: 17 Year
  Sex: Female
  Weight: 45 kg

DRUGS (17)
  1. MERONEM [Suspect]
     Route: 042
     Dates: start: 20070529, end: 20070529
  2. ATROVENT [Concomitant]
     Route: 055
  3. CREON [Concomitant]
     Route: 048
  4. ETHAMBUTOL HYDROCHLORIDE [Concomitant]
  5. FERROUS SULFATE TAB [Concomitant]
     Route: 048
  6. MOXIFLOXACIN HCL [Concomitant]
  7. MULTIVITAMIN PREPARATION [Concomitant]
  8. OMEPRAZOLE [Concomitant]
  9. ONDANSETRON [Concomitant]
     Route: 048
  10. PARACETAMOL [Concomitant]
     Route: 042
     Dates: start: 20070529, end: 20070529
  11. PREDNISOLONE [Concomitant]
     Route: 048
     Dates: start: 20070529
  12. PREDNISOLONE [Concomitant]
     Route: 065
  13. SEPTRIN [Concomitant]
  14. THEOPHYLLINE [Concomitant]
     Route: 048
     Dates: start: 20070529
  15. URSODIOL [Concomitant]
     Route: 048
  16. VENTOLIN [Concomitant]
  17. VITAMIN E [Concomitant]
     Route: 048

REACTIONS (1)
  - ANAPHYLACTIC REACTION [None]
